FAERS Safety Report 24001648 (Version 2)
Quarter: 2024Q3

REPORT INFORMATION
  Report Type: Spontaneous
  Country: AU (occurrence: AU)
  Receive Date: 20240621
  Receipt Date: 20240821
  Transmission Date: 20241017
  Serious: Yes (Hospitalization, Other)
  Sender: SANDOZ
  Company Number: AU-ABBVIE-5758434

PATIENT
  Age: 45 Year
  Sex: Female

DRUGS (2)
  1. ADALIMUMAB [Suspect]
     Active Substance: ADALIMUMAB
     Indication: Takayasu^s arteritis
     Dosage: 40 MG
     Route: 058
  2. HUMIRA [Suspect]
     Active Substance: ADALIMUMAB
     Indication: Product used for unknown indication
     Dosage: 40 MG
     Route: 058

REACTIONS (6)
  - Condition aggravated [Unknown]
  - Angioplasty [Unknown]
  - Coronary artery bypass [Unknown]
  - Takayasu^s arteritis [Unknown]
  - Illness [Unknown]
  - Therapeutic product effect incomplete [Unknown]
